FAERS Safety Report 7532169-4 (Version None)
Quarter: 2011Q2

REPORT INFORMATION
  Report Type: 
  Country: None (occurrence: None)
  Receive Date: 20110608
  Receipt Date: 20110603
  Transmission Date: 20111010
  Serious: Yes (Other)
  Sender: FDA-Public Use
  Company Number: US-PFIZER INC-2009296900

PATIENT
  Sex: Male
  Weight: 86.168 kg

DRUGS (9)
  1. ASPIRIN [Concomitant]
     Indication: PROPHYLAXIS
     Dosage: UNK, DAILY
  2. TIKOSYN [Suspect]
     Dosage: 125 UG, 2X/DAY
  3. COZAAR [Concomitant]
     Dosage: 100 MG, 1X/DAY, DAILY
  4. DILTIAZEM [Suspect]
     Dosage: 120 MG, 1X/DAY, DAILY
  5. NAPROSYN [Concomitant]
     Dosage: UNK
  6. TIKOSYN [Suspect]
     Indication: ATRIAL FIBRILLATION
     Dosage: 500 UG, 2X/DAY
     Route: 048
     Dates: start: 20090918
  7. POTASSIUM CHLORIDE [Concomitant]
     Dosage: 20 MG, 2X/DAY
  8. TAURINE [Concomitant]
     Indication: ARRHYTHMIA
     Dosage: UNK
  9. ASPIRIN [Concomitant]
     Indication: INFLAMMATION

REACTIONS (3)
  - HEART RATE DECREASED [None]
  - DYSPNOEA [None]
  - PRODUCTIVE COUGH [None]
